FAERS Safety Report 24744144 (Version 1)
Quarter: 2024Q4

REPORT INFORMATION
  Report Type: Spontaneous
  Country: JP (occurrence: JP)
  Receive Date: 20241217
  Receipt Date: 20241217
  Transmission Date: 20250115
  Serious: Yes (Hospitalization, Other)
  Sender: BOEHRINGER INGELHEIM
  Company Number: JP-NBI-S201900105

PATIENT
  Age: 64 Year
  Sex: Male

DRUGS (11)
  1. JARDIANCE [Suspect]
     Active Substance: EMPAGLIFLOZIN
     Indication: Type 2 diabetes mellitus
     Dosage: 25 MG, BEFORE EACH MEAL
     Route: 048
     Dates: start: 20190913
  2. VILDAGLIPTIN [Suspect]
     Active Substance: VILDAGLIPTIN
     Indication: Type 2 diabetes mellitus
     Route: 048
  3. HUMALOG [Suspect]
     Active Substance: INSULIN LISPRO
     Indication: Type 2 diabetes mellitus
     Dosage: 3-5-3, UNK
     Route: 058
     Dates: end: 20190910
  4. METFORMIN [Suspect]
     Active Substance: METFORMIN HYDROCHLORIDE
     Indication: Type 2 diabetes mellitus
     Route: 048
     Dates: start: 20190913
  5. TRESIBA [Suspect]
     Active Substance: INSULIN DEGLUDEC
     Indication: Type 2 diabetes mellitus
     Route: 058
     Dates: end: 20190716
  6. TRESIBA [Suspect]
     Active Substance: INSULIN DEGLUDEC
     Route: 058
     Dates: start: 201909
  7. BASEN [Concomitant]
     Indication: Type 2 diabetes mellitus
     Route: 065
     Dates: start: 20190913
  8. ELIQUIS [Concomitant]
     Active Substance: APIXABAN
     Indication: Product used for unknown indication
     Route: 065
     Dates: end: 2019
  9. ENSURE [Concomitant]
     Active Substance: AMINO ACIDS\DEXTROSE\ELECTROLYTES NOS\SOYBEAN OIL\VITAMINS
     Indication: Product used for unknown indication
     Route: 065
  10. INSULIN NOS [Concomitant]
     Active Substance: INSULIN NOS
     Indication: Product used for unknown indication
     Dosage: UNK
     Route: 065
     Dates: end: 201909
  11. LANTUS [Concomitant]
     Active Substance: INSULIN GLARGINE
     Indication: Product used for unknown indication
     Route: 065

REACTIONS (16)
  - Hypoglycaemia [Recovering/Resolving]
  - Chills [Recovering/Resolving]
  - Posture abnormal [Recovering/Resolving]
  - Vomiting [Unknown]
  - Constipation [Unknown]
  - Blood pressure decreased [Recovered/Resolved]
  - Gastric polyps [Unknown]
  - Haematemesis [Recovered/Resolved]
  - Diabetic ketoacidosis [Recovering/Resolving]
  - Depressed level of consciousness [Recovered/Resolved]
  - Lactic acidosis [Recovering/Resolving]
  - Atrial fibrillation [Unknown]
  - Dysstasia [Unknown]
  - Chronic gastritis [Unknown]
  - Gastric mucosa erythema [Unknown]
  - Gastric mucosal lesion [Unknown]

NARRATIVE: CASE EVENT DATE: 20190711
